FAERS Safety Report 5846572-1 (Version None)
Quarter: 2008Q3

REPORT INFORMATION
  Report Type: 
  Country: None (occurrence: None)
  Receive Date: 20080815
  Receipt Date: 20080806
  Transmission Date: 20090109
  Serious: Yes (Death, Other)
  Sender: FDA-Public Use
  Company Number: ES-JNJFOC-20080801063

PATIENT
  Age: 78 Year
  Sex: Male

DRUGS (5)
  1. DOXORUBICIN HCL [Suspect]
     Indication: NON-HODGKIN'S LYMPHOMA
     Dosage: ADMINISTERED ON DAY 1 OF CYCLE
     Route: 042
  2. RITUXIMAB [Suspect]
     Indication: NON-HODGKIN'S LYMPHOMA
     Dosage: ADMINISTERED ON DAY 1 OF CYCLE
     Route: 065
  3. CYCLOPHOSPHAMIDE [Suspect]
     Indication: NON-HODGKIN'S LYMPHOMA
     Dosage: ADMINISTERED ON DAY 1 OF CYCLE
     Route: 065
  4. VINCRISTINE [Suspect]
     Indication: NON-HODGKIN'S LYMPHOMA
     Dosage: ADMINISTERED ON DAY 1 OF CYCLE
     Route: 065
  5. PREDNISOLONE [Suspect]
     Indication: NON-HODGKIN'S LYMPHOMA
     Dosage: ADMINISTERED FOR 5 CONSECUTIVE DAYS PER CYCLE
     Route: 065

REACTIONS (4)
  - ADRENAL INSUFFICIENCY [None]
  - ISCHAEMIC CARDIOMYOPATHY [None]
  - NEUTROPENIA [None]
  - SEPSIS [None]
